FAERS Safety Report 5604595-1 (Version None)
Quarter: 2008Q1

REPORT INFORMATION
  Report Type: 
  Country: None (occurrence: None)
  Receive Date: 20080124
  Receipt Date: 20080124
  Transmission Date: 20080703
  Serious: Yes (Other)
  Sender: FDA-Public Use
  Company Number: None

PATIENT
  Age: 82 Year
  Sex: Male
  Weight: 83.9154 kg

DRUGS (1)
  1. CEFEPIME [Suspect]

REACTIONS (1)
  - URINE ODOUR ABNORMAL [None]
